FAERS Safety Report 4742000-8 (Version None)
Quarter: 2005Q3

REPORT INFORMATION
  Report Type: 
  Country: None (occurrence: None)
  Receive Date: 20050801
  Receipt Date: 20040810
  Transmission Date: 20060218
  Serious: No
  Sender: FDA-Public Use
  Company Number: 208357

PATIENT
  Age: 67 Year
  Sex: Male

DRUGS (1)
  1. RITUXAN [Suspect]
     Indication: B-CELL LYMPHOMA
     Dosage: INTRAVENOUS
     Route: 042
     Dates: start: 20040501

REACTIONS (1)
  - MYOCARDIAL INFARCTION [None]
